FAERS Safety Report 16004555 (Version 3)
Quarter: 2019Q1

REPORT INFORMATION
  Report Type: Spontaneous
  Country: US (occurrence: US)
  Receive Date: 20190226
  Receipt Date: 20190325
  Transmission Date: 20190418
  Serious: Yes (Hospitalization, Other)
  Sender: FDA-Public Use
  Company Number: US-SA-2019SA050987

PATIENT
  Age: 43 Year
  Sex: Female

DRUGS (14)
  1. ACYCLOVIR [ACICLOVIR] [Concomitant]
     Active Substance: ACYCLOVIR
  2. CALCIUM + VIT D [Concomitant]
     Active Substance: CALCIUM\VITAMIN D
  3. MULTIVITAMIN [VITAMINS NOS] [Concomitant]
  4. MELATONIN [Concomitant]
     Active Substance: MELATONIN
  5. ZANAFLEX [Concomitant]
     Active Substance: TIZANIDINE HYDROCHLORIDE
  6. VORTIOXETINE. [Concomitant]
     Active Substance: VORTIOXETINE
  7. FLAX OIL [LINUM USITATISSIMUM OIL] [Concomitant]
     Dosage: UNK
  8. ATORVASTATIN [Concomitant]
     Active Substance: ATORVASTATIN
  9. VITAMIN D3 [Concomitant]
     Active Substance: CHOLECALCIFEROL
  10. METHYLPREDNISOLONE. [Concomitant]
     Active Substance: METHYLPREDNISOLONE
     Indication: PREMEDICATION
  11. VALACYCLOVIR [Concomitant]
     Active Substance: VALACYCLOVIR HYDROCHLORIDE
  12. MINERAL OIL. [Concomitant]
     Active Substance: MINERAL OIL
  13. ALEMTUZUMAB [Suspect]
     Active Substance: ALEMTUZUMAB
     Indication: RELAPSING-REMITTING MULTIPLE SCLEROSIS
     Route: 041
  14. FISH OIL [Concomitant]
     Active Substance: FISH OIL

REACTIONS (8)
  - Hemiparesis [Unknown]
  - Haemorrhage intracranial [Unknown]
  - Unresponsive to stimuli [Unknown]
  - Platelet count decreased [Unknown]
  - Dysarthria [Unknown]
  - Headache [Recovered/Resolved]
  - Blood pressure increased [Unknown]
  - Muscle spasticity [Unknown]
